FAERS Safety Report 14505672 (Version 1)
Quarter: 2018Q1

REPORT INFORMATION
  Report Type: Spontaneous
  Country: ES (occurrence: ES)
  Receive Date: 20180208
  Receipt Date: 20180208
  Transmission Date: 20180509
  Serious: Yes (Death, Hospitalization, Other)
  Sender: FDA-Public Use
  Company Number: ES-PFIZER INC-2018056036

PATIENT
  Age: 63 Year
  Sex: Female

DRUGS (2)
  1. PARACETAMOL [Suspect]
     Active Substance: ACETAMINOPHEN
     Indication: BACK PAIN
     Dosage: UNK
     Route: 048
     Dates: start: 20160920
  2. SUTENT [Suspect]
     Active Substance: SUNITINIB MALATE
     Indication: RENAL CANCER STAGE IV
     Dosage: 50 MG, DAILY [CYCLIC (14 DAYS / 21 DAYS)]
     Route: 048
     Dates: start: 20171115

REACTIONS (1)
  - Hepatitis toxic [Fatal]

NARRATIVE: CASE EVENT DATE: 20180118
